FAERS Safety Report 10403094 (Version 2)
Quarter: 2014Q3

REPORT INFORMATION
  Report Type: Spontaneous
  Country: US (occurrence: US)
  Receive Date: 20140822
  Receipt Date: 20140822
  Transmission Date: 20150326
  Serious: Yes (Hospitalization)
  Sender: FDA-Public Use
  Company Number: US-GLAXOSMITHKLINE-A0731266A

PATIENT
  Sex: Female
  Weight: 100 kg

DRUGS (8)
  1. AVANDAMET [Suspect]
     Active Substance: METFORMIN HYDROCHLORIDE\ROSIGLITAZONE MALEATE
     Indication: TYPE 2 DIABETES MELLITUS
     Route: 048
     Dates: start: 200511
  2. ZOCOR [Concomitant]
     Active Substance: SIMVASTATIN
  3. INSULIN [Concomitant]
     Active Substance: INSULIN NOS
     Dates: start: 20061029, end: 20061105
  4. METOPROLOL [Concomitant]
     Active Substance: METOPROLOL
  5. AVANDIA [Suspect]
     Active Substance: ROSIGLITAZONE MALEATE
     Indication: TYPE 2 DIABETES MELLITUS
     Dosage: 4MG TWICE PER DAY
     Route: 048
     Dates: start: 20010129, end: 20080401
  6. GLIPIZIDE. [Concomitant]
     Active Substance: GLIPIZIDE
  7. GLUCOTROL [Concomitant]
     Active Substance: GLIPIZIDE
     Dates: start: 2008
  8. NEXIUM [Concomitant]
     Active Substance: ESOMEPRAZOLE MAGNESIUM

REACTIONS (5)
  - Coronary artery disease [Unknown]
  - Myocardial infarction [Unknown]
  - Acute coronary syndrome [Unknown]
  - Cardiac failure congestive [Unknown]
  - Angina unstable [Unknown]
